FAERS Safety Report 6339119-7 (Version None)
Quarter: 2009Q3

REPORT INFORMATION
  Report Type: 
  Country: None (occurrence: None)
  Receive Date: 20090903
  Receipt Date: 20090825
  Transmission Date: 20100115
  Serious: Yes (Hospitalization, Other)
  Sender: FDA-Public Use
  Company Number: JP-BRISTOL-MYERS SQUIBB COMPANY-14729362

PATIENT
  Age: 85 Year
  Sex: Female

DRUGS (6)
  1. MITOMYCIN [Suspect]
     Indication: HEPATIC NEOPLASM MALIGNANT
     Dosage: FORM = INJ
     Route: 013
     Dates: start: 20041001
  2. ADRIACIN [Suspect]
     Indication: HEPATIC NEOPLASM MALIGNANT
     Dosage: FORM = INJ;12MG-OCT04-APR06;21SEP07.
     Route: 013
     Dates: start: 20041001
  3. LIPIODOL [Suspect]
     Indication: HEPATIC NEOPLASM MALIGNANT
     Dosage: 1.2MLOCT04-APR06;21SEP07.
     Route: 013
     Dates: start: 20041001
  4. GELPART [Suspect]
     Indication: HEPATIC NEOPLASM MALIGNANT
     Dosage: OCT04-APR06;21SEP07.
     Route: 013
     Dates: start: 20041001
  5. ETHANOL [Concomitant]
     Route: 013
     Dates: start: 20041001, end: 20060401
  6. ACTOS [Concomitant]
     Route: 048

REACTIONS (1)
  - LIVER ABSCESS [None]
